FAERS Safety Report 9518868 (Version 1)
Quarter: 2013Q1

REPORT INFORMATION
  Report Type: Spontaneous
  Country: US (occurrence: None)
  Receive Date: 20130305
  Receipt Date: 20130305
  Transmission Date: 20140127
  Serious: Yes (Other)
  Sender: FDA-Public Use
  Company Number: 163-21880-12053265

PATIENT
  Age: 74 Year
  Sex: Female
  Weight: 55.34 kg

DRUGS (20)
  1. REVLIMID (LENALIDOMIDE) (CAPSULES) [Suspect]
     Indication: PLASMA CELL MYELOMA
     Dosage: 15 MG, 1 IN 2 D, PO
     Route: 048
     Dates: start: 20120305, end: 20120725
  2. AMBIEN (ZOLPIDEM TARTRATE) (UNKNOWN) [Concomitant]
  3. ASA (ACETYLSALICYLIC ACID) (UNKNOWN) [Concomitant]
  4. CRESTOR (ROSUVASTATIN) (UNKNOWN) [Concomitant]
  5. LORAZEPAM (LORAZEPAM) (UNKNOWN) [Concomitant]
  6. NEXIUM (ESOMEPRAZOLE) (UNKNOWN) [Concomitant]
  7. PRORENAL (LIMAPROST) (UNKNOWN) [Concomitant]
  8. ZOFRAN (ONDANSETRON HYDROCHLORIDE) (UNKNOWN) [Concomitant]
  9. ALPRAZOLAM (ALPRAZOLAM) (UNKNOWN) (ALPRAZOLAM) [Concomitant]
  10. OXYCODONE (OXYCODONE) (UNKNOWN) (OXYCODONE) [Concomitant]
  11. TRAMADOL (TRAMODOL) (UNKNOWN) [Concomitant]
  12. DEXAMETHASONE (DEXAMETHASONE) (UNKNOWN) [Concomitant]
  13. STOOL SOFTENER (DOCUSATE SODIUM) (UNKNOWN) [Concomitant]
  14. MIRALAX (MACROGOL) (UNKNOWN) [Concomitant]
  15. BYSTOLIC (NEBIVOLOL HYDROCHLORIDE) (UNKNOWN) [Concomitant]
  16. FIORINAL (BUTALBITAL W/ASPIRIN, CAFFEINE) (UNKNOWN) [Concomitant]
  17. NIFEIDIPINE (UNKNOWN) [Concomitant]
  18. PHOSLO (CALCIUM ACETATE) (UNKNOWN) [Concomitant]
  19. PREDNISONE (PREDNISONE) (UNKNOWN) [Concomitant]
  20. VELCADE (BORTEZOMIB) [Concomitant]

REACTIONS (13)
  - Haemoglobin decreased [None]
  - Paraesthesia [None]
  - Dizziness [None]
  - Anxiety [None]
  - Dyspnoea [None]
  - Weight decreased [None]
  - Alopecia [None]
  - Hypoaesthesia [None]
  - Gingival pain [None]
  - Blood creatinine increased [None]
  - Nausea [None]
  - Vomiting [None]
  - Dry mouth [None]
